FAERS Safety Report 18404044 (Version 2)
Quarter: 2020Q4

REPORT INFORMATION
  Report Type: Spontaneous
  Country: US (occurrence: US)
  Receive Date: 20201020
  Receipt Date: 20201118
  Transmission Date: 20210114
  Serious: No
  Sender: FDA-Public Use
  Company Number: US-MYLANLABS-2020M1085985

PATIENT
  Sex: Male
  Weight: 107 kg

DRUGS (4)
  1. CLOBETASOL [Suspect]
     Active Substance: CLOBETASOL
     Indication: DRY SKIN
  2. CLOBETASOL [Suspect]
     Active Substance: CLOBETASOL
     Indication: TRICHORRHEXIS
  3. CLOBETASOL [Suspect]
     Active Substance: CLOBETASOL
     Indication: PRURITUS
     Dosage: UNK, PRN
  4. CLOBETASOL [Suspect]
     Active Substance: CLOBETASOL
     Indication: SKIN HAEMORRHAGE

REACTIONS (4)
  - Off label use [Unknown]
  - Application site erythema [Recovering/Resolving]
  - Application site irritation [Recovering/Resolving]
  - Drug ineffective [Unknown]
